FAERS Safety Report 5726109-8 (Version None)
Quarter: 2008Q2

REPORT INFORMATION
  Report Type: 
  Country: None (occurrence: None)
  Receive Date: 20080501
  Receipt Date: 20080501
  Transmission Date: 20081010
  Serious: Yes (Other)
  Sender: FDA-Public Use
  Company Number: None

PATIENT
  Sex: Female
  Weight: 56.6996 kg

DRUGS (2)
  1. CITALOPRAM HYDROBROMIDE [Suspect]
     Indication: DEPRESSION
     Dosage: 1 AND 1/2 TABLETS DAILY PO
     Route: 048
     Dates: start: 20080403, end: 20080423
  2. CELEXA [Suspect]

REACTIONS (3)
  - ARRHYTHMIA [None]
  - EXTRASYSTOLES [None]
  - PHARMACEUTICAL PRODUCT COMPLAINT [None]
